FAERS Safety Report 15549497 (Version 7)
Quarter: 2020Q4

REPORT INFORMATION
  Report Type: Spontaneous
  Country: US (occurrence: US)
  Receive Date: 20181025
  Receipt Date: 20201208
  Transmission Date: 20210113
  Serious: Yes (Other)
  Sender: FDA-Public Use
  Company Number: US-PFIZER INC-2018429036

PATIENT
  Age: 87 Year
  Sex: Female
  Weight: 63 kg

DRUGS (4)
  1. LYRICA [Suspect]
     Active Substance: PREGABALIN
     Indication: PAIN IN EXTREMITY
     Dosage: 50 MG, UNK (WHEN SHE FEELS FUNNY HEADED SHE DROPS HER DOSAGE BACK TO 50 MG)
  2. LYRICA [Suspect]
     Active Substance: PREGABALIN
     Indication: PAIN
     Dosage: UNK
  3. LYRICA [Suspect]
     Active Substance: PREGABALIN
     Indication: NEUROPATHY PERIPHERAL
     Dosage: 2 DF, 1X/DAY (SHE TRIES TO TAKE 2 LYRICA AT BEDTIME)
  4. LYRICA [Suspect]
     Active Substance: PREGABALIN
     Dosage: 50 MG, 3X/DAY
     Route: 048

REACTIONS (12)
  - Hypoaesthesia [Unknown]
  - Feeling abnormal [Unknown]
  - Vision blurred [Unknown]
  - Cardiac disorder [Unknown]
  - Croup infectious [Unknown]
  - Dizziness [Unknown]
  - Foot deformity [Unknown]
  - Insomnia [Unknown]
  - Arthritis [Unknown]
  - Pain in extremity [Unknown]
  - Intentional product misuse [Unknown]
  - Feeling drunk [Unknown]
